FAERS Safety Report 4504373-0 (Version None)
Quarter: 2004Q4

REPORT INFORMATION
  Report Type: 
  Country: None (occurrence: None)
  Receive Date: 20041115
  Receipt Date: 20041028
  Transmission Date: 20050328
  Serious: Yes (Life-Threatening, Hospitalization, Other)
  Sender: FDA-Public Use
  Company Number: STA-AE-04-MTX-520

PATIENT
  Age: 5 Year
  Sex: Female

DRUGS (4)
  1. METHOTREXATE [Suspect]
     Indication: JUVENILE ARTHRITIS
     Dosage: 10 MG, FREQUENCY UNK, ORAL
     Route: 048
     Dates: start: 20030306, end: 20040929
  2. PIROXICAM [Concomitant]
  3. IBUPROFEN [Concomitant]
  4. FOLIC ACID [Concomitant]

REACTIONS (2)
  - ACUTE LYMPHOCYTIC LEUKAEMIA [None]
  - PANCYTOPENIA [None]
